FAERS Safety Report 22218802 (Version 2)
Quarter: 2023Q2

REPORT INFORMATION
  Report Type: Report from Study
  Country: US (occurrence: US)
  Receive Date: 20230417
  Receipt Date: 20230509
  Transmission Date: 20230722
  Serious: Yes (Other)
  Sender: FDA-Public Use
  Company Number: US-002147023-NVSC2023US084424

PATIENT
  Age: 58 Year
  Sex: Female

DRUGS (1)
  1. ENTRESTO [Suspect]
     Active Substance: SACUBITRIL\VALSARTAN
     Indication: Cardiac failure
     Dosage: 1 DOSAGE FORM, BID
     Route: 048
     Dates: start: 20230407

REACTIONS (5)
  - Hypertension [Not Recovered/Not Resolved]
  - Clumsiness [Unknown]
  - Heart rate increased [Not Recovered/Not Resolved]
  - Rhinorrhoea [Unknown]
  - Dizziness [Unknown]

NARRATIVE: CASE EVENT DATE: 20230407
